FAERS Safety Report 12633722 (Version 2)
Quarter: 2016Q3

REPORT INFORMATION
  Report Type: Report from Study
  Country: US (occurrence: US)
  Receive Date: 20160809
  Receipt Date: 20160902
  Transmission Date: 20161109
  Serious: Yes (Other)
  Sender: FDA-Public Use
  Company Number: US-BRISTOL-MYERS SQUIBB COMPANY-BMS-2016-062890

PATIENT
  Age: 53 Year
  Sex: Female

DRUGS (1)
  1. WARFARIN SODIUM. [Suspect]
     Active Substance: WARFARIN SODIUM
     Indication: COAGULOPATHY
     Dosage: 13 -24 MONTHS
     Route: 065

REACTIONS (4)
  - Laceration [Unknown]
  - Contusion [Unknown]
  - Dizziness [Unknown]
  - Haemorrhage [Unknown]
